FAERS Safety Report 8202692 (Version 2)
Quarter: 2013Q3

REPORT INFORMATION
  Report Type: Spontaneous
  Country: NL (occurrence: NL)
  Receive Date: 20111027
  Receipt Date: 20130718
  Transmission Date: 20140515
  Serious: Yes (Hospitalization)
  Sender: FDA-Public Use
  Company Number: PHHY2011NL92724

PATIENT
  Age: 54 Year
  Sex: Male
  Weight: 95 kg

DRUGS (2)
  1. FLUVASTATIN SODIUM [Suspect]
     Dosage: 80 MG, UNK
     Route: 048
     Dates: start: 200110
  2. FLUVASTATIN SODIUM [Suspect]
     Dosage: 20 MG, UNK
     Route: 048

REACTIONS (2)
  - Tendon rupture [Unknown]
  - Myalgia [Not Recovered/Not Resolved]
